FAERS Safety Report 4609119-3 (Version None)
Quarter: 2005Q1

REPORT INFORMATION
  Report Type: 
  Country: None (occurrence: None)
  Receive Date: 20050311
  Receipt Date: 20050304
  Transmission Date: 20050727
  Serious: Yes (Other)
  Sender: FDA-Public Use
  Company Number: S05-USA-01148-01

PATIENT
  Sex: Female

DRUGS (1)
  1. LEXAPRO [Suspect]

REACTIONS (5)
  - CONVULSION [None]
  - FATIGUE [None]
  - GOUT [None]
  - SOMNOLENCE [None]
  - SUICIDAL IDEATION [None]
